FAERS Safety Report 15478541 (Version 1)
Quarter: 2018Q4

REPORT INFORMATION
  Report Type: Spontaneous
  Country: IN (occurrence: IN)
  Receive Date: 20181003
  Receipt Date: 20181003
  Transmission Date: 20190205
  Serious: Yes (Other)
  Sender: FDA-Public Use
  Company Number: None

PATIENT

DRUGS (1)
  1. TOSSEX CHLORPHENIRAMINE 4MG/ 100ML SYRUP 10/4 MG [Suspect]
     Active Substance: CHLORPHENIRAMINE MALEATE\CODEINE PHOSPHATE
     Indication: COUGH
     Dosage: ?          QUANTITY:1 TEASPOON(S);?
     Route: 048
     Dates: start: 20180929, end: 20181002

REACTIONS (3)
  - Hallucination [None]
  - Hyperhidrosis [None]
  - Muscle twitching [None]

NARRATIVE: CASE EVENT DATE: 20181002
